FAERS Safety Report 9435358 (Version 4)
Quarter: 2013Q3

REPORT INFORMATION
  Report Type: Spontaneous
  Country: US (occurrence: US)
  Receive Date: 20130801
  Receipt Date: 20130904
  Transmission Date: 20140515
  Serious: Yes (Other)
  Sender: FDA-Public Use
  Company Number: US-GLAXOSMITHKLINE-A1034887A

PATIENT
  Age: 56 Year
  Sex: Male

DRUGS (3)
  1. FLOVENT [Suspect]
     Indication: ASTHMA
     Dosage: 2PUFF TWICE PER DAY
     Route: 055
     Dates: start: 20130716, end: 20130717
  2. WARFARIN [Concomitant]
  3. AMLODIPINE [Concomitant]

REACTIONS (3)
  - Aphagia [Recovered/Resolved]
  - Vomiting [Recovered/Resolved]
  - Malaise [Unknown]
